FAERS Safety Report 4697679-6 (Version None)
Quarter: 2005Q2

REPORT INFORMATION
  Report Type: 
  Country: None (occurrence: None)
  Receive Date: 20050622
  Receipt Date: 20050609
  Transmission Date: 20051028
  Serious: Yes (Other)
  Sender: FDA-Public Use
  Company Number: 2005076970

PATIENT
  Age: 71 Year
  Sex: Female
  Weight: 73.0291 kg

DRUGS (7)
  1. CELEBREX [Suspect]
     Indication: ARTHRITIS
     Dosage: 200 MG (100 MG, 2 IN 1 D), ORAL
     Route: 048
  2. CELEBREX [Suspect]
     Indication: OSTEOARTHRITIS
     Dosage: 200 MG (100 MG, 2 IN 1 D), ORAL
     Route: 048
  3. CELEBREX [Suspect]
     Indication: SWELLING
     Dosage: 200 MG (100 MG, 2 IN 1 D), ORAL
     Route: 048
  4. BEXTRA [Suspect]
  5. AMARYL [Concomitant]
  6. DARVOCET (DEXTROPROPOXYPHENE NAPSILATE, PARACETAMOL) [Concomitant]
  7. ALTACE [Concomitant]

REACTIONS (7)
  - BACK DISORDER [None]
  - CATARACT [None]
  - DIFFICULTY IN WALKING [None]
  - DRUG INEFFECTIVE [None]
  - FALL [None]
  - HIP FRACTURE [None]
  - RASH [None]
